FAERS Safety Report 7610567-8 (Version None)
Quarter: 2011Q3

REPORT INFORMATION
  Report Type: 
  Country: None (occurrence: None)
  Receive Date: 20110715
  Receipt Date: 20110706
  Transmission Date: 20111222
  Serious: No
  Sender: FDA-Public Use
  Company Number: US-B.I. PHARMACEUTICALS,INC./RIDGEFIELD-2011-BP-17126BP

PATIENT
  Age: 61 Year
  Sex: Female

DRUGS (11)
  1. XANAX [Concomitant]
     Indication: ANXIETY
     Dosage: 0.25 MG
     Route: 048
  2. CITRACAL [Concomitant]
     Indication: OSTEOARTHRITIS
     Route: 048
  3. PRADAXA [Suspect]
     Indication: ATRIAL FIBRILLATION
     Dosage: 300 MG
     Route: 048
     Dates: start: 20110501
  4. AMBIEN [Concomitant]
     Indication: SLEEP DISORDER
     Dosage: 5 MG
     Route: 048
  5. TOPAMAX [Concomitant]
     Indication: MIGRAINE
     Dosage: 100 MG
     Route: 048
  6. PRILOSEC [Concomitant]
     Indication: GASTROOESOPHAGEAL REFLUX DISEASE
     Dosage: 20 MG
     Route: 048
  7. MEDICATION NOT FURTHER SPECIFIED [Concomitant]
     Indication: FIBROMYALGIA
  8. CYMBALTA [Concomitant]
     Indication: DEPRESSION
     Dosage: 60 MG
     Route: 048
  9. VIT D [Concomitant]
     Indication: OSTEOARTHRITIS
     Route: 048
  10. XANAX [Concomitant]
     Dosage: 4 MG
     Route: 048
  11. CYMBALTA [Concomitant]
     Indication: NEURALGIA

REACTIONS (3)
  - OEDEMA PERIPHERAL [None]
  - JOINT SWELLING [None]
  - HEADACHE [None]
